FAERS Safety Report 24149390 (Version 2)
Quarter: 2024Q3

REPORT INFORMATION
  Report Type: Spontaneous
  Country: JP (occurrence: JP)
  Receive Date: 20240730
  Receipt Date: 20240820
  Transmission Date: 20241017
  Serious: Yes (Death)
  Sender: ABBVIE
  Company Number: JP-ABBVIE-5858577

PATIENT
  Age: 60 Year
  Sex: Male

DRUGS (1)
  1. GLECAPREVIR\PIBRENTASVIR [Suspect]
     Active Substance: GLECAPREVIR\PIBRENTASVIR
     Indication: Hepatitis C
     Route: 048

REACTIONS (1)
  - Death [Fatal]
